FAERS Safety Report 10982522 (Version 6)
Quarter: 2015Q3

REPORT INFORMATION
  Report Type: Spontaneous
  Country: KR (occurrence: KR)
  Receive Date: 20150403
  Receipt Date: 20150911
  Transmission Date: 20151125
  Serious: Yes (Other)
  Sender: FDA-Public Use
  Company Number: KR-MERCK-1501KOR000685

PATIENT
  Age: 39 Year
  Sex: Male
  Weight: 48 kg

DRUGS (15)
  1. TACENOL ER [Concomitant]
     Indication: PAIN PROPHYLAXIS
     Dosage: 650 MG, QD
     Route: 048
     Dates: start: 20141103, end: 20141103
  2. FENTANYL CITRATE. [Concomitant]
     Active Substance: FENTANYL CITRATE
     Indication: PAIN PROPHYLAXIS
     Dosage: 100 MICROGRAM, QD
     Route: 008
     Dates: start: 20141104, end: 20141104
  3. NEOSTIGMINE METHYLSULFATE. [Concomitant]
     Active Substance: NEOSTIGMINE METHYLSULFATE
     Indication: PAIN PROPHYLAXIS
     Dosage: 0.5 MG, QD, CONTINUOUS INFUSION
     Route: 050
     Dates: start: 20141104, end: 20141107
  4. XEROVA [Concomitant]
     Indication: THIRST
     Dosage: 1 TIME, ONCE, REPORTED AS SPRAY, ORAL CAVITY
     Route: 050
     Dates: start: 20141104, end: 20141104
  5. ROCURONIUM BROMIDE. [Suspect]
     Active Substance: ROCURONIUM BROMIDE
     Indication: MUSCLE RELAXANT THERAPY
     Dosage: 50 MG, QD
     Route: 042
     Dates: start: 20141104, end: 20141104
  6. HALCION [Concomitant]
     Active Substance: TRIAZOLAM
     Indication: PROPHYLAXIS
     Dosage: 0.25 MG, QD
     Route: 048
     Dates: start: 20141104, end: 20141104
  7. ROCURONIUM BROMIDE. [Suspect]
     Active Substance: ROCURONIUM BROMIDE
     Dosage: 75 MG OF RCURONIUM WERE ADMINISTERED BY CONTINUOUS INFUSION FROM 14:40 TO 17:15
     Route: 041
     Dates: start: 20141104, end: 20141104
  8. FENTANYL CITRATE. [Concomitant]
     Active Substance: FENTANYL CITRATE
     Dosage: 1000 MICROGRAM, INFUSION
     Route: 008
     Dates: start: 20141104, end: 20141107
  9. ALOXI [Concomitant]
     Active Substance: PALONOSETRON HYDROCHLORIDE
     Indication: PROPHYLAXIS OF NAUSEA AND VOMITING
     Dosage: 0.075 MG, QD
     Route: 042
     Dates: start: 20141104
  10. EPHEDRINE HYDROCHLORIDE [Concomitant]
     Active Substance: EPHEDRINE HYDROCHLORIDE
     Indication: BLOOD PRESSURE MEASUREMENT
     Dosage: 8 MG, QD
     Route: 042
     Dates: start: 20141104
  11. BRIDION [Suspect]
     Active Substance: SUGAMMADEX
     Indication: NEUROMUSCULAR BLOCKADE REVERSAL
     Dosage: 96 MG, ONCE, DOSE:2 MG/KG; ACTUAL DOSE 100 MG
     Route: 042
     Dates: start: 20141104, end: 20141104
  12. ROPIVACAINE [Concomitant]
     Active Substance: ROPIVACAINE
     Indication: PAIN PROPHYLAXIS
     Dosage: 10 MG, QD
     Route: 008
     Dates: start: 20141104, end: 20141104
  13. HEXAMEDIN [Concomitant]
     Indication: PROPHYLAXIS
     Dosage: 1 TIME, ROUTE REPORTED AS GARGLE
     Route: 050
     Dates: start: 20141103, end: 20141103
  14. CEFAZOLIN [Concomitant]
     Active Substance: CEFAZOLIN
     Indication: INFECTION PROPHYLAXIS
     Dosage: 1 G, BID
     Route: 042
     Dates: start: 20141104, end: 20141104
  15. ROPIVACAINE [Concomitant]
     Active Substance: ROPIVACAINE
     Dosage: 200 MG,QD, INFUSION
     Route: 008
     Dates: start: 20141104, end: 20141107

REACTIONS (11)
  - Abdominal discomfort [Recovered/Resolved]
  - Thirst [Recovered/Resolved]
  - Alanine aminotransferase increased [Recovered/Resolved]
  - Dizziness [Recovered/Resolved]
  - Headache [Recovered/Resolved]
  - Pyrexia [Recovered/Resolved]
  - Anaemia [Recovered/Resolved]
  - Aspartate aminotransferase increased [Recovered/Resolved]
  - Feeling cold [Recovered/Resolved]
  - Urticaria [Recovered/Resolved]
  - Diarrhoea [Recovered/Resolved]

NARRATIVE: CASE EVENT DATE: 20141104
